FAERS Safety Report 9972928 (Version 1)
Quarter: 2014Q1

REPORT INFORMATION
  Report Type: Spontaneous
  Country: US (occurrence: US)
  Receive Date: 20140306
  Receipt Date: 20140306
  Transmission Date: 20141002
  Serious: Yes (Other)
  Sender: FDA-Public Use
  Company Number: US-ACTAVIS-2014-03564

PATIENT
  Age: 88 Year
  Sex: Female

DRUGS (2)
  1. FENTANYL-50 (WATSON LABORATORIES) [Suspect]
     Indication: PAIN
     Dosage: 1 DF, EVERY 3 DAYS
     Route: 062
     Dates: start: 201312
  2. FENTANYL-50 (WATSON LABORATORIES) [Suspect]
     Dosage: 1 DF, Q72H
     Route: 062

REACTIONS (5)
  - Drug withdrawal syndrome [Not Recovered/Not Resolved]
  - Anxiety [Not Recovered/Not Resolved]
  - Drug ineffective [Not Recovered/Not Resolved]
  - Sensation of foreign body [Not Recovered/Not Resolved]
  - Insomnia [Not Recovered/Not Resolved]
